FAERS Safety Report 22537833 (Version 3)
Quarter: 2025Q3

REPORT INFORMATION
  Report Type: Report from Study
  Country: US (occurrence: US)
  Receive Date: 20230608
  Receipt Date: 20250710
  Transmission Date: 20251020
  Serious: Yes (Hospitalization, Other)
  Sender: JAZZ
  Company Number: US-JAZZ PHARMACEUTICALS-2023-US-010546

PATIENT
  Sex: Female

DRUGS (2)
  1. EPIDIOLEX [Suspect]
     Active Substance: CANNABIDIOL
     Indication: Tuberous sclerosis complex
     Dosage: 350 MILLIGRAM, BID
     Route: 048
     Dates: start: 202009
  2. EPIDIOLEX [Suspect]
     Active Substance: CANNABIDIOL
     Dosage: 3.5 MILLILITER
     Route: 048
     Dates: start: 202304

REACTIONS (2)
  - Incisional hernia [Not Recovered/Not Resolved]
  - Complications of transplant surgery [Unknown]
